FAERS Safety Report 23909381 (Version 2)
Quarter: 2024Q2

REPORT INFORMATION
  Report Type: Report from Study
  Country: US (occurrence: US)
  Receive Date: 20240528
  Receipt Date: 20240529
  Transmission Date: 20240716
  Serious: Yes (Hospitalization)
  Sender: FDA-Public Use
  Company Number: US-Merck Healthcare KGaA-2024024181

PATIENT
  Age: 80 Year
  Sex: Male
  Weight: 95 kg

DRUGS (11)
  1. AVELUMAB [Suspect]
     Active Substance: AVELUMAB
     Indication: Neuroendocrine carcinoma of the skin
     Dosage: 800 MG, DOSE/UNIT: AVELUMAB (MSB0010718C) 800 MG IN SODIUM CHLORIDE 0.9 PERCENT 250 MLIVPB ORPLACEBO
     Dates: start: 20240109
  2. INVESTIGATIONAL PRODUCT [Suspect]
     Active Substance: INVESTIGATIONAL PRODUCT
     Indication: Neuroendocrine carcinoma of the skin
     Dosage: 800 MG, DOSE/UNIT: AVELUMAB (MSB0010718C) 800 MG IN SODIUM CHLORIDE 0.9 PERCENT 250 MLIVPB ORPLACEBO
     Dates: start: 20240109
  3. AVELUMAB [Suspect]
     Active Substance: AVELUMAB
     Dosage: 800 MG, DOSE/UNIT: AVELUMAB (MSB0010718C) 800 MG IN SODIUM CHLORIDE 0.9 PERCENT 250 MLIVPB ORPLACEBO
     Dates: start: 20240423
  4. INVESTIGATIONAL PRODUCT [Suspect]
     Active Substance: INVESTIGATIONAL PRODUCT
     Dosage: 800 MG, DOSE/UNIT: AVELUMAB (MSB0010718C) 800 MG IN SODIUM CHLORIDE 0.9 PERCENT 250 MLIVPB ORPLACEBO
     Dates: start: 20240423
  5. MORPHINE SULFATE [Suspect]
     Active Substance: MORPHINE SULFATE
     Indication: Brachial plexopathy
     Dosage: 15 MG, 1X/DAY
     Route: 048
     Dates: start: 20240423, end: 20240426
  6. MORPHINE SULFATE [Suspect]
     Active Substance: MORPHINE SULFATE
     Indication: Pain
  7. OXYCODONE [Concomitant]
     Active Substance: OXYCODONE\OXYCODONE HYDROCHLORIDE
     Indication: Brachial plexopathy
     Dosage: 5 MG, 4X/DAY (ONCE EVERY 6 HOURS)
     Route: 048
     Dates: start: 20240203
  8. OXYCODONE [Concomitant]
     Active Substance: OXYCODONE\OXYCODONE HYDROCHLORIDE
     Indication: Pain
  9. PREGABALIN [Concomitant]
     Active Substance: PREGABALIN
     Indication: Pain
     Dosage: 75 MG (EVERY 0.3 DAY)/BID TO TID ON 23-APR-2024
     Route: 048
     Dates: start: 20240219
  10. METHYLPREDNISOLONE [Concomitant]
     Active Substance: METHYLPREDNISOLONE
     Indication: Brachial plexopathy
     Dosage: UNK, 1X/DAY (24 MG PLUS TAPER)
     Route: 048
     Dates: start: 20240309, end: 20240314
  11. PREDNISONE [Concomitant]
     Active Substance: PREDNISONE
     Indication: Brachial plexopathy
     Dosage: UNK, 1X/DAY (40 MG PLUS TAPER)
     Route: 048
     Dates: start: 20240327, end: 20240415

REACTIONS (2)
  - Pneumonia [Recovered/Resolved]
  - Sepsis [Recovered/Resolved]

NARRATIVE: CASE EVENT DATE: 20240426
